FAERS Safety Report 5276211-2 (Version None)
Quarter: 2007Q1

REPORT INFORMATION
  Report Type: 
  Country: None (occurrence: None)
  Receive Date: 20070326
  Receipt Date: 20070323
  Transmission Date: 20070707
  Serious: Yes (Other)
  Sender: FDA-Public Use
  Company Number: JP-BOEHRINGER INGELHEIM PHARMACEUTICALS, INC.-2007-BP-04132NB

PATIENT
  Age: 91 Year
  Sex: Female

DRUGS (1)
  1. PERSANTIN [Suspect]
     Route: 048

REACTIONS (3)
  - DRUG ABUSER [None]
  - OVERDOSE [None]
  - SUICIDE ATTEMPT [None]
